FAERS Safety Report 7816880-3 (Version None)
Quarter: 2011Q4

REPORT INFORMATION
  Report Type: 
  Country: None (occurrence: None)
  Receive Date: 20111017
  Receipt Date: 20111006
  Transmission Date: 20120403
  Serious: Yes (Other)
  Sender: FDA-Public Use
  Company Number: US-GENZYME-CAMP-1000736

PATIENT
  Sex: Male
  Weight: 91.61 kg

DRUGS (28)
  1. METHYLPREDNISOLONE [Concomitant]
     Indication: MULTIPLE SCLEROSIS
     Dosage: 1.0 G, QDX3
     Route: 042
     Dates: start: 20090601, end: 20090603
  2. TREXIMET [Concomitant]
     Indication: MIGRAINE
     Dosage: 85/500 MG, PRN
     Route: 048
     Dates: start: 20001001
  3. IBUPROFEN [Concomitant]
     Indication: HEADACHE
     Dosage: 200 MG, PRN
     Route: 048
     Dates: start: 19860101
  4. TYLENOL-500 [Concomitant]
     Indication: ARTHRALGIA
  5. KEPPRA [Concomitant]
     Dosage: 1500 MG, BID
     Route: 048
     Dates: start: 20100609, end: 20100708
  6. METHYLPREDNISOLONE [Suspect]
     Dosage: 1.0 G, QDX3
     Route: 042
     Dates: start: 20100614, end: 20100616
  7. VITAMIN B COMPLEX CAP [Concomitant]
     Indication: VITAMIN SUPPLEMENTATION
     Dosage: 1 TAB, QD
     Route: 048
     Dates: start: 20081001
  8. ZOFRAN [Concomitant]
     Indication: ABDOMINAL DISCOMFORT
     Dosage: 8 MG, PRN
     Route: 048
     Dates: start: 20090610
  9. DIASTAT [Concomitant]
     Indication: CONVULSION
     Dosage: 10 MG, PRN
     Route: 054
     Dates: start: 20091028
  10. VALIUM [Concomitant]
     Indication: CONVULSION
     Dosage: 5 MG, PRN
     Route: 048
     Dates: start: 20091201
  11. CITALOPRAM [Concomitant]
     Indication: DEPRESSION
     Dosage: 20 MG, QD
     Route: 048
     Dates: start: 20090708
  12. NEURONTIN [Concomitant]
     Indication: PRODUCT USED FOR UNKNOWN INDICATION
     Dosage: 300 MG, TID
     Route: 048
     Dates: start: 20090928
  13. MIRALAX [Concomitant]
     Indication: CONSTIPATION
     Dosage: 17 G, QD
     Route: 048
     Dates: start: 20091101
  14. KEPPRA [Concomitant]
     Indication: CONVULSION
     Dosage: 1500 MG, BID
     Route: 048
     Dates: start: 20100717
  15. CALCIUM CARBONATE [Concomitant]
     Indication: VITAMIN SUPPLEMENTATION
     Dosage: 1 TAB, QD
     Dates: start: 20071001
  16. ZYRTEC [Concomitant]
     Indication: SEASONAL ALLERGY
     Dosage: 10 MG, QD
     Route: 048
     Dates: start: 20090530
  17. EVOCLINE FOAM [Concomitant]
     Indication: PRODUCT USED FOR UNKNOWN INDICATION
     Dosage: UNK UNK, PRN
     Route: 061
     Dates: start: 20090723
  18. ALEMTUZUMAB [Suspect]
     Indication: MULTIPLE SCLEROSIS
     Dosage: 12 MG, QDX5
     Route: 042
     Dates: start: 20090601, end: 20090605
  19. TYLENOL-500 [Concomitant]
     Indication: HEADACHE
     Dosage: 1000 MG, PRN
     Route: 048
     Dates: start: 20090610
  20. PEPCID [Concomitant]
     Indication: PROPHYLAXIS
     Dosage: 20 MG, QD
     Route: 048
     Dates: start: 20100612, end: 20100618
  21. OXYCODONE HCL AND ACETAMINOPHEN [Concomitant]
     Indication: PAIN
     Dosage: 10/325 MG, PRN
     Route: 048
     Dates: start: 20081001
  22. BACLOFEN [Concomitant]
     Indication: MUSCLE SPASTICITY
     Dosage: 20 MG, UNK
     Route: 048
     Dates: start: 20090817
  23. LAMICTAL XR [Concomitant]
     Indication: CONVULSION
     Dosage: 300 MG, QD
     Route: 048
     Dates: start: 20100106
  24. KEPPRA [Concomitant]
     Dosage: 1000 MG, BID
     Route: 048
     Dates: start: 20100709, end: 20100716
  25. ATARAX [Concomitant]
     Indication: PROPHYLAXIS
     Dosage: 25 MG, PRN
     Route: 048
     Dates: start: 20100614, end: 20100616
  26. ACYCLOVIR [Concomitant]
     Indication: PROPHYLAXIS
     Dosage: 400 MG, BID
     Route: 048
     Dates: start: 20100614, end: 20100715
  27. ALEMTUZUMAB [Suspect]
     Dosage: 12 MG, QDX3
     Route: 042
     Dates: start: 20100614, end: 20100616
  28. ASCORBIC ACID [Concomitant]
     Indication: VITAMIN SUPPLEMENTATION
     Dosage: 1 TAB, QD
     Route: 048
     Dates: start: 20081001

REACTIONS (1)
  - ANGINA PECTORIS [None]
